FAERS Safety Report 17062804 (Version 6)
Quarter: 2023Q1

REPORT INFORMATION
  Report Type: Other
  Country: CN (occurrence: None)
  Receive Date: 20191122
  Receipt Date: 20230119
  Transmission Date: 20230418
  Serious: Yes (Other)
  Sender: FDA-Public Use
  Company Number: CN-ROCHE-2055588

PATIENT
  Age: 61 Year
  Sex: Female
  Weight: 68 kg

DRUGS (1)
  1. AVASTIN [Suspect]
     Active Substance: BEVACIZUMAB
     Indication: Colon cancer
     Dosage: FORM OF ADMIN: 100 MG
     Route: 041
     Dates: start: 20170511

REACTIONS (14)
  - Pancreatitis acute [Recovering/Resolving]
  - Asthenia [Unknown]
  - Nasopharyngitis [Unknown]
  - Pyrexia [Unknown]
  - Diarrhoea [Unknown]
  - Enteritis [Unknown]
  - Urinary tract infection [Unknown]
  - Pyrexia [Unknown]
  - General physical health deterioration [Unknown]
  - Diarrhoea [Unknown]
  - Cough [Unknown]
  - Oropharyngeal pain [Unknown]
  - Asthenia [Unknown]
  - COVID-19 [Recovered/Resolved]

NARRATIVE: CASE EVENT DATE: 20190319
